FAERS Safety Report 19310757 (Version 1)
Quarter: 2021Q2

REPORT INFORMATION
  Report Type: Spontaneous
  Country: US (occurrence: US)
  Receive Date: 20210526
  Receipt Date: 20210526
  Transmission Date: 20210717
  Serious: Yes (Other)
  Sender: FDA-Public Use
  Company Number: US-BAUSCH-BL-2021-018609

PATIENT
  Age: 84 Year
  Sex: Male

DRUGS (2)
  1. UCERIS [Suspect]
     Active Substance: BUDESONIDE
     Indication: COLITIS
     Route: 065
  2. BUDESONIDE EXTENDED RELEASE TABLETS [Suspect]
     Active Substance: BUDESONIDE
     Indication: COLITIS
     Route: 065

REACTIONS (6)
  - Insurance issue [Unknown]
  - Neoplasm malignant [Unknown]
  - Impaired quality of life [Not Recovered/Not Resolved]
  - Defaecation urgency [Unknown]
  - Therapeutic product effect incomplete [Unknown]
  - Inability to afford medication [Unknown]
